FAERS Safety Report 8119955-7 (Version None)
Quarter: 2012Q1

REPORT INFORMATION
  Report Type: 
  Country: None (occurrence: None)
  Receive Date: 20120206
  Receipt Date: 20120206
  Transmission Date: 20120608
  Serious: Yes (Life-Threatening, Hospitalization, Disabling, Congenital Anomaly, Other)
  Sender: FDA-Public Use
  Company Number: None

PATIENT
  Age: 62 Year
  Sex: Male
  Weight: 97.5234 kg

DRUGS (1)
  1. NAPROXEN SODIUM [Suspect]
     Dosage: 550 MG 1-TABLET, TWICE A DAY MAY 18, 2012 RX 1601235-04241
     Dates: start: 20110518

REACTIONS (1)
  - NO ADVERSE EVENT [None]
